FAERS Safety Report 9256309 (Version 1)
Quarter: 2013Q2

REPORT INFORMATION
  Report Type: Spontaneous
  Country: US (occurrence: US)
  Receive Date: 20130425
  Receipt Date: 20130425
  Transmission Date: 20140414
  Serious: No
  Sender: FDA-Public Use
  Company Number: US-AMGEN-USASP2012055403

PATIENT
  Age: 19 Year
  Sex: Female

DRUGS (2)
  1. NEULASTA [Suspect]
     Indication: NEUTROPENIA
     Dosage: UNK UNK, AFTER CHEMO
     Dates: start: 20120331, end: 20120720
  2. NEULASTA [Suspect]
     Dosage: 4 MG, AFTER CHEMO
     Dates: start: 20120720

REACTIONS (1)
  - Bone pain [Unknown]
